FAERS Safety Report 9819455 (Version 1)
Quarter: 2014Q1

REPORT INFORMATION
  Report Type: Spontaneous
  Country: JP (occurrence: JP)
  Receive Date: 20140115
  Receipt Date: 20140115
  Transmission Date: 20141002
  Serious: Yes (Other)
  Sender: FDA-Public Use
  Company Number: JP-PFIZER INC-2014012818

PATIENT
  Age: 81 Year
  Sex: Male

DRUGS (2)
  1. LYRICA [Suspect]
     Dosage: 150 MG, DAILY
     Route: 048
  2. LYRICA [Suspect]
     Dosage: 300 MG, DAILY
     Route: 048

REACTIONS (3)
  - Drug prescribing error [Unknown]
  - Cerebral infarction [Unknown]
  - Dysarthria [Unknown]
